FAERS Safety Report 7941695-5 (Version None)
Quarter: 2011Q4

REPORT INFORMATION
  Report Type: 
  Country: None (occurrence: None)
  Receive Date: 20111128
  Receipt Date: 20111128
  Transmission Date: 20120403
  Serious: Yes (Hospitalization)
  Sender: FDA-Public Use
  Company Number: None

PATIENT
  Age: 32 Year
  Sex: Female
  Weight: 70.306 kg

DRUGS (1)
  1. INVEGA [Suspect]
     Indication: BIPOLAR I DISORDER
     Dosage: 75 MG
     Route: 048
     Dates: start: 20090408, end: 20090409

REACTIONS (1)
  - HYPERSOMNIA [None]
